FAERS Safety Report 7358137-3 (Version None)
Quarter: 2011Q1

REPORT INFORMATION
  Report Type: 
  Country: None (occurrence: None)
  Receive Date: 20110317
  Receipt Date: 20110310
  Transmission Date: 20110831
  Serious: Yes (Hospitalization)
  Sender: FDA-Public Use
  Company Number: IE-MEDIMMUNE-MEDI-0012865

PATIENT
  Sex: Male

DRUGS (3)
  1. LEVETIRACETAM [Concomitant]
  2. SYNAGIS [Suspect]
     Route: 030
     Dates: start: 20101013, end: 20101013
  3. BECLOMETASONE DIPROPIONATE [Concomitant]

REACTIONS (2)
  - PYREXIA [None]
  - BRONCHIOLITIS [None]
